FAERS Safety Report 7246998-8 (Version None)
Quarter: 2011Q1

REPORT INFORMATION
  Report Type: 
  Country: None (occurrence: None)
  Receive Date: 20110127
  Receipt Date: 20101117
  Transmission Date: 20110831
  Serious: Yes (Hospitalization, Other)
  Sender: FDA-Public Use
  Company Number: DE-GENZYME-201020719GPV

PATIENT
  Age: 63 Year
  Sex: Male
  Weight: 69 kg

DRUGS (13)
  1. FLUDARA [Suspect]
     Dosage: 35 MG, UNK
     Route: 042
  2. RITUXIMAB [Suspect]
     Indication: CHRONIC LYMPHOCYTIC LEUKAEMIA
     Dosage: 705 MG, UNK
     Route: 042
     Dates: start: 20100222, end: 20100222
  3. FLUDARA [Suspect]
     Dosage: 35 MG, UNK
     Route: 042
  4. ZYLORIC [Concomitant]
     Indication: PRODUCT USED FOR UNKNOWN INDICATION
     Dosage: 300 MG QD
     Route: 048
     Dates: start: 20100322
  5. COTRIM [Concomitant]
     Indication: PRODUCT USED FOR UNKNOWN INDICATION
     Dosage: UNK, TIW
     Route: 048
     Dates: start: 20100322
  6. RITUXIMAB [Suspect]
     Dosage: 923 MG, UNK
     Route: 042
  7. CYCLOPHOSPHAMIDE [Suspect]
     Dosage: 346 MG, UNK
     Route: 042
  8. JONOSTERIL [Concomitant]
     Indication: PRODUCT USED FOR UNKNOWN INDICATION
     Dosage: 500 ML QID
     Route: 042
     Dates: start: 20100322, end: 20100322
  9. FLUDARA [Suspect]
     Indication: CHRONIC LYMPHOCYTIC LEUKAEMIA
     Dosage: 47 MG, UNK
     Route: 042
     Dates: start: 20100223, end: 20100225
  10. GRANOCYTE 34 [Concomitant]
     Indication: PRODUCT USED FOR UNKNOWN INDICATION
     Dosage: UNK
     Route: 065
  11. CYCLOPHOSPHAMIDE [Suspect]
     Indication: CHRONIC LYMPHOCYTIC LEUKAEMIA
     Dosage: 470 MG, UNK
     Route: 042
     Dates: start: 20100223, end: 20100225
  12. RITUXIMAB [Suspect]
     Dosage: 923 MG, UNK
     Route: 042
  13. PANTOZOL [Concomitant]
     Indication: PRODUCT USED FOR UNKNOWN INDICATION
     Dosage: 20 MG QD
     Route: 048
     Dates: start: 20100322

REACTIONS (3)
  - FEBRILE NEUTROPENIA [None]
  - FALL [None]
  - APHTHOUS STOMATITIS [None]
